FAERS Safety Report 15670354 (Version 1)
Quarter: 2018Q4

REPORT INFORMATION
  Report Type: Spontaneous
  Country: JP (occurrence: JP)
  Receive Date: 20181129
  Receipt Date: 20181129
  Transmission Date: 20190205
  Serious: Yes (Other)
  Sender: FDA-Public Use
  Company Number: JP-PFIZER INC-2018483807

PATIENT
  Age: 56 Year
  Sex: Male

DRUGS (1)
  1. SALAZOPYRIN 500MG [Suspect]
     Active Substance: SULFASALAZINE
     Dosage: 500 MG, UNK
     Dates: start: 201712, end: 201712

REACTIONS (2)
  - Oculomucocutaneous syndrome [Unknown]
  - Stevens-Johnson syndrome [Unknown]
